FAERS Safety Report 6009119-5 (Version None)
Quarter: 2008Q4

REPORT INFORMATION
  Report Type: 
  Country: None (occurrence: None)
  Receive Date: 20081216
  Receipt Date: 20081205
  Transmission Date: 20090506
  Serious: Yes (Hospitalization, Other)
  Sender: FDA-Public Use
  Company Number: DSA_32860_2008

PATIENT
  Sex: Male

DRUGS (9)
  1. TEMESTA /00273201/ (TEMESTA) (NOT SPECIFIED) [Suspect]
     Indication: DRUG USE FOR UNKNOWN INDICATION
     Dosage: DF, 1 MG QD; 2 MG QD; 1 MG QD; 2 MG QD; 1 MG QD
     Dates: start: 20080823, end: 20080824
  2. TEMESTA /00273201/ (TEMESTA) (NOT SPECIFIED) [Suspect]
     Indication: DRUG USE FOR UNKNOWN INDICATION
     Dosage: DF, 1 MG QD; 2 MG QD; 1 MG QD; 2 MG QD; 1 MG QD
     Dates: start: 20080825, end: 20080825
  3. TEMESTA /00273201/ (TEMESTA) (NOT SPECIFIED) [Suspect]
     Indication: DRUG USE FOR UNKNOWN INDICATION
     Dosage: DF, 1 MG QD; 2 MG QD; 1 MG QD; 2 MG QD; 1 MG QD
     Dates: start: 20080826, end: 20080826
  4. TEMESTA /00273201/ (TEMESTA) (NOT SPECIFIED) [Suspect]
     Indication: DRUG USE FOR UNKNOWN INDICATION
     Dosage: DF, 1 MG QD; 2 MG QD; 1 MG QD; 2 MG QD; 1 MG QD
     Dates: start: 20080828, end: 20080828
  5. TEMESTA /00273201/ (TEMESTA) (NOT SPECIFIED) [Suspect]
     Indication: DRUG USE FOR UNKNOWN INDICATION
     Dosage: DF, 1 MG QD; 2 MG QD; 1 MG QD; 2 MG QD; 1 MG QD
     Dates: start: 20080829, end: 20080829
  6. TEMESTA /00273201/ (TEMESTA) (NOT SPECIFIED) [Suspect]
     Indication: DRUG USE FOR UNKNOWN INDICATION
     Dosage: DF, 1 MG QD; 2 MG QD; 1 MG QD; 2 MG QD; 1 MG QD
     Dates: start: 20080801
  7. SEROQUEL [Suspect]
     Indication: DRUG USE FOR UNKNOWN INDICATION
     Dosage: 200 MG QD ORAL; 300 MG QD ORAL); 400 MG QD ORAL
     Route: 048
     Dates: start: 20080823, end: 20080824
  8. SEROQUEL [Suspect]
     Indication: DRUG USE FOR UNKNOWN INDICATION
     Dosage: 200 MG QD ORAL; 300 MG QD ORAL); 400 MG QD ORAL
     Route: 048
     Dates: start: 20080825, end: 20080825
  9. SEROQUEL [Suspect]
     Indication: DRUG USE FOR UNKNOWN INDICATION
     Dosage: 200 MG QD ORAL; 300 MG QD ORAL); 400 MG QD ORAL
     Route: 048
     Dates: start: 20080826, end: 20080826

REACTIONS (2)
  - RASH MACULO-PAPULAR [None]
  - UNEVALUABLE EVENT [None]
